FAERS Safety Report 16552553 (Version 1)
Quarter: 2019Q3

REPORT INFORMATION
  Report Type: Other
  Country: CA (occurrence: CA)
  Receive Date: 20190710
  Receipt Date: 20190710
  Transmission Date: 20191004
  Serious: Yes (Other)
  Sender: FDA-Public Use
  Company Number: CA-PFIZER INC-2019290687

PATIENT
  Age: 69 Year
  Sex: Female

DRUGS (7)
  1. LEVOFLOXACIN. [Suspect]
     Active Substance: LEVOFLOXACIN
     Dosage: UNK
  2. TRAZODONE [Suspect]
     Active Substance: TRAZODONE HYDROCHLORIDE
     Dosage: UNK
  3. BUPROPION. [Suspect]
     Active Substance: BUPROPION
     Dosage: UNK
  4. CITALOPRAM [Suspect]
     Active Substance: CITALOPRAM HYDROBROMIDE
     Dosage: UNK
  5. NEFAZODONE [Suspect]
     Active Substance: NEFAZODONE
     Dosage: UNK
  6. BENZYLPENICILLIN POTASSIUM/BENZYLPENICILLIN SODIUM [Suspect]
     Active Substance: BENETHAMINE PENICILLIN\PENICILLIN G SODIUM
     Dosage: UNK
  7. VENLAFAXINE HCL [Suspect]
     Active Substance: VENLAFAXINE HYDROCHLORIDE
     Dosage: UNK

REACTIONS (7)
  - Dizziness [Unknown]
  - Agitation [Unknown]
  - Drug intolerance [Unknown]
  - Fall [Unknown]
  - Drug hypersensitivity [Unknown]
  - Myalgia [Unknown]
  - Headache [Unknown]
